FAERS Safety Report 15320668 (Version 2)
Quarter: 2018Q3

REPORT INFORMATION
  Report Type: Spontaneous
  Country: NL (occurrence: NL)
  Receive Date: 20180827
  Receipt Date: 20180918
  Transmission Date: 20181010
  Serious: Yes (Hospitalization, Disabling)
  Sender: FDA-Public Use
  Company Number: PHHY2018NL076858

PATIENT
  Sex: Male

DRUGS (3)
  1. BISOPROLOL [Suspect]
     Active Substance: BISOPROLOL
     Indication: HYPERTENSION
     Dosage: UNK
     Route: 065
  2. LERDIP [Concomitant]
     Indication: HYPERTENSION
     Dosage: UNK
     Route: 065
  3. DOXAZOSINE [Concomitant]
     Active Substance: DOXAZOSIN MESYLATE
     Indication: HYPERTENSION
     Dosage: UNK
     Route: 065

REACTIONS (12)
  - Paraesthesia [Unknown]
  - Paraesthesia oral [Unknown]
  - Pain in extremity [Unknown]
  - Muscular weakness [Unknown]
  - Gait disturbance [Unknown]
  - Hemiparesis [Unknown]
  - Syncope [Unknown]
  - Urinary incontinence [Unknown]
  - Headache [Unknown]
  - Cerebrovascular accident [Unknown]
  - Asthenia [Unknown]
  - Hypoaesthesia [Unknown]

NARRATIVE: CASE EVENT DATE: 20161102
